FAERS Safety Report 9348761 (Version 1)
Quarter: 2013Q2

REPORT INFORMATION
  Report Type: Spontaneous
  Country: US (occurrence: US)
  Receive Date: 20130614
  Receipt Date: 20130614
  Transmission Date: 20140414
  Serious: Yes (Other)
  Sender: FDA-Public Use
  Company Number: US-MYLANLABS-2013S1012492

PATIENT
  Age: 66 Year
  Sex: Female
  Weight: 86.18 kg

DRUGS (3)
  1. DILANTIN [Suspect]
     Indication: GRAND MAL CONVULSION
     Route: 048
     Dates: start: 1968
  2. EXTENDED PHENYTOIN SODIUM CAPSULES, USP [Suspect]
     Indication: GRAND MAL CONVULSION
     Route: 048
  3. SYNTHROID [Concomitant]

REACTIONS (1)
  - Hepatic cyst [Not Recovered/Not Resolved]
